FAERS Safety Report 6017396-X (Version None)
Quarter: 2008Q4

REPORT INFORMATION
  Report Type: 
  Country: None (occurrence: None)
  Receive Date: 20081223
  Receipt Date: 20081215
  Transmission Date: 20090506
  Serious: Yes (Disabling, Other)
  Sender: FDA-Public Use
  Company Number: PHEH2007US11162

PATIENT
  Sex: Female

DRUGS (17)
  1. ZOMETA [Suspect]
     Dosage: UNK, UNK
  2. AREDIA [Suspect]
  3. FOSAMAX [Suspect]
     Dosage: 70 MG, UNK
     Dates: start: 20040101
  4. BEXTRA [Concomitant]
     Dosage: 20 MG, UNK
     Dates: start: 20040101
  5. CELEBREX [Concomitant]
     Dosage: 100 MG, UNK
     Dates: start: 20040101
  6. NEURONTIN [Concomitant]
     Dosage: 300 MG, UNK
     Dates: start: 20040101
  7. PROTONIX [Concomitant]
     Dosage: 40 MG, UNK
     Dates: start: 20040101
  8. DEXAMETHASONE [Concomitant]
     Dosage: 4 MG, UNK
     Dates: start: 20040101
  9. PROVIGIL [Concomitant]
     Dosage: 100 MG, UNK
     Dates: start: 20040101
  10. BIAXIN [Concomitant]
     Dosage: 250 MG, UNK
     Dates: start: 20040101
  11. LEVAQUIN [Concomitant]
     Dosage: 500 MG, UNK
     Dates: start: 20040101
  12. CLINDAMYCIN [Concomitant]
     Dosage: 300 MG, UNK
     Dates: start: 20050101
  13. WARFARIN SODIUM [Concomitant]
     Dosage: 1 MG, UNK
     Dates: start: 20050101
  14. MORPHINE SULFATE [Concomitant]
     Dosage: 100 MG, UNK
     Dates: start: 20050101
  15. HYDROMORPHONE HCL [Concomitant]
     Dosage: 4 MG, UNK
     Dates: start: 20060101
  16. PREVACID [Concomitant]
     Dosage: 30 MG, UNK
     Dates: start: 20060101
  17. NEXIUM [Concomitant]
     Dosage: 40 MG, UNK
     Dates: start: 20070101

REACTIONS (9)
  - DECREASED INTEREST [None]
  - DISABILITY [None]
  - ECONOMIC PROBLEM [None]
  - EMOTIONAL DISTRESS [None]
  - MULTIPLE INJURIES [None]
  - OSTEONECROSIS [None]
  - PAIN [None]
  - PHYSICAL DISABILITY [None]
  - ROUTINE HEALTH MAINTENANCE [None]
